FAERS Safety Report 26070239 (Version 2)
Quarter: 2025Q4

REPORT INFORMATION
  Report Type: Report from Study
  Country: CO (occurrence: CO)
  Receive Date: 20251120
  Receipt Date: 20251203
  Transmission Date: 20260118
  Serious: No
  Sender: JOHNSON AND JOHNSON
  Company Number: CO-JNJFOC-20251028624

PATIENT
  Age: 55 Year
  Sex: Female
  Weight: 100 kg

DRUGS (2)
  1. TREMFYA [Suspect]
     Active Substance: GUSELKUMAB
     Indication: Psoriasis
     Dosage: LAST ADMINISTRATION DATE: SEPTEMBER 15, 2025
     Route: 058
     Dates: start: 20220706
  2. TREMFYA [Suspect]
     Active Substance: GUSELKUMAB

REACTIONS (7)
  - Haemorrhage [Unknown]
  - Injection site mass [Unknown]
  - Pain in extremity [Unknown]
  - Injection site swelling [Unknown]
  - Syringe issue [Unknown]
  - Product dose omission issue [Unknown]
  - Influenza like illness [Recovering/Resolving]

NARRATIVE: CASE EVENT DATE: 20250901
